FAERS Safety Report 8910723 (Version 1)
Quarter: 2012Q4

REPORT INFORMATION
  Report Type: Spontaneous
  Country: CN (occurrence: None)
  Receive Date: 20121107
  Receipt Date: 20121107
  Transmission Date: 20130627
  Serious: Yes (Life-Threatening)
  Sender: FDA-Public Use
  Company Number: CN-20120010

PATIENT
  Age: 54 Year
  Sex: Male

DRUGS (2)
  1. LIPIODOL (ETHIODIZED OIL) (ETHIODIZED OIL) [Suspect]
     Indication: CHEMOEMBOLISATION
     Dosage: (30 ML, 1 IN 1 D)
     Route: 013
  2. PIRARUBICIN [Suspect]
     Indication: CHEMOEMBOLISATION
     Dosage: (40 MG, 1 IN 1 D)
     Route: 013

REACTIONS (1)
  - Cerebral artery embolism [None]
